FAERS Safety Report 9734349 (Version 1)
Quarter: 2013Q4

REPORT INFORMATION
  Report Type: Spontaneous
  Country: US (occurrence: US)
  Receive Date: 20131206
  Receipt Date: 20131206
  Transmission Date: 20140711
  Serious: Yes (Other)
  Sender: FDA-Public Use
  Company Number: US-AMGEN-USASP2013085521

PATIENT
  Age: 54 Year
  Sex: Female

DRUGS (1)
  1. ENBREL [Suspect]
     Indication: RHEUMATOID ARTHRITIS
     Dosage: 50 MG, QWK
     Route: 065
     Dates: start: 20130422, end: 20131002

REACTIONS (7)
  - Road traffic accident [Recovered/Resolved]
  - Concussion [Not Recovered/Not Resolved]
  - Pneumonia [Recovered/Resolved]
  - Neck pain [Not Recovered/Not Resolved]
  - Arthralgia [Not Recovered/Not Resolved]
  - Amnesia [Not Recovered/Not Resolved]
  - Speech disorder [Not Recovered/Not Resolved]
